FAERS Safety Report 6669197-7 (Version None)
Quarter: 2010Q2

REPORT INFORMATION
  Report Type: 
  Country: None (occurrence: None)
  Receive Date: 20100406
  Receipt Date: 20100319
  Transmission Date: 20101027
  Serious: No
  Sender: FDA-Public Use
  Company Number: US-B.I. PHARMACEUTICALS,INC./RIDGEFIELD-2010-BP-03321BP

PATIENT
  Sex: Female
  Weight: 122.74 kg

DRUGS (6)
  1. MIRAPEX [Suspect]
     Indication: MUSCLE SPASTICITY
     Dates: start: 20070701
  2. MIRAPEX [Suspect]
     Indication: SLEEP DISORDER
     Dosage: 0.5 MG
  3. MIRAPEX [Suspect]
     Indication: PAIN IN EXTREMITY
  4. MIRAPEX [Suspect]
     Indication: NERVE INJURY
  5. MIRAPEX [Suspect]
     Indication: RESTLESS LEGS SYNDROME
  6. INSULIN [Concomitant]
     Indication: DIABETES MELLITUS
     Route: 058
     Dates: start: 20050101

REACTIONS (6)
  - ASTHENOPIA [None]
  - BALANCE DISORDER [None]
  - DYSPHEMIA [None]
  - MOVEMENT DISORDER [None]
  - SPEECH DISORDER [None]
  - VOMITING [None]
